FAERS Safety Report 25028868 (Version 1)
Quarter: 2025Q1

REPORT INFORMATION
  Report Type: Spontaneous
  Country: US (occurrence: US)
  Receive Date: 20250302
  Receipt Date: 20250302
  Transmission Date: 20250409
  Serious: Yes (Other)
  Sender: NOVO NORDISK
  Company Number: US-NOVOPROD-1377366

PATIENT
  Age: 66 Year
  Sex: Female

DRUGS (3)
  1. OZEMPIC [Suspect]
     Active Substance: SEMAGLUTIDE
     Indication: Glycosylated haemoglobin increased
     Dosage: 0.5 MG, QW
     Route: 058
     Dates: start: 202407
  2. OZEMPIC [Suspect]
     Active Substance: SEMAGLUTIDE
     Indication: Carotid artery disease
  3. OZEMPIC [Suspect]
     Active Substance: SEMAGLUTIDE
     Indication: Blood cholesterol increased

REACTIONS (1)
  - Knee arthroplasty [Recovering/Resolving]

NARRATIVE: CASE EVENT DATE: 20250127
